FAERS Safety Report 22286452 (Version 1)
Quarter: 2023Q2

REPORT INFORMATION
  Report Type: Report from Study
  Country: IL (occurrence: IL)
  Receive Date: 20230505
  Receipt Date: 20230505
  Transmission Date: 20230721
  Serious: Yes (Hospitalization, Other)
  Sender: FDA-Public Use
  Company Number: IL-ABBVIE-4749619

PATIENT
  Age: 79 Year
  Sex: Male

DRUGS (1)
  1. SKYRIZI [Suspect]
     Active Substance: RISANKIZUMAB-RZAA
     Indication: Psoriasis
     Route: 065
     Dates: start: 20211114

REACTIONS (3)
  - Myocardial infarction [Unknown]
  - Renal disorder [Unknown]
  - Angiopathy [Unknown]

NARRATIVE: CASE EVENT DATE: 20221101
